FAERS Safety Report 9240188 (Version 1)
Quarter: 2013Q2

REPORT INFORMATION
  Report Type: Spontaneous
  Country: GB (occurrence: None)
  Receive Date: 20130417
  Receipt Date: 20130417
  Transmission Date: 20140414
  Serious: Yes (Disabling)
  Sender: FDA-Public Use
  Company Number: E2B_00000733

PATIENT
  Age: 53 Year
  Sex: Female
  Weight: 75 kg

DRUGS (12)
  1. SERTRALINE HYDROCHLORIDE (UNKNOWN) [Suspect]
     Indication: DEPRESSION
     Dosage: 50 MG (UNKNOWN, 1 D), ORAL
     Route: 048
     Dates: start: 20130301, end: 20130304
  2. GABAPENTIN (UNKNOWN) (GABAPENTIN) [Concomitant]
  3. SALBUTAMOL (UNKNOWN) [Concomitant]
  4. RAMIPRIL (UNKNOWN) (RAMIPRIL) [Concomitant]
  5. BECLOMETHASONE DIPROPIONATE (QVAR) (UNKNOWN) [Concomitant]
  6. DIAZEPAM (UNKNOWN) [Concomitant]
  7. DIHYDROCODEINE (UNKNOWN) [Concomitant]
  8. BUPRENORPHINE (SUBUTEX) (UNKNOWN) [Concomitant]
  9. AMOXICILLIN (UNKNOWN) [Concomitant]
  10. FLUCONAZOLE (UNKNOWN) [Concomitant]
  11. PREDNISOLONE (UNKNOWN) [Concomitant]
  12. DOSULEPIN (UNKNOWN) [Concomitant]

REACTIONS (9)
  - Mania [None]
  - Hallucination, olfactory [None]
  - Vomiting [None]
  - Diarrhoea [None]
  - Insomnia [None]
  - Dizziness [None]
  - Hyperhidrosis [None]
  - Serotonin syndrome [None]
  - Medication error [None]
